FAERS Safety Report 21118307 (Version 4)
Quarter: 2022Q3

REPORT INFORMATION
  Report Type: Report from Study
  Country: TR (occurrence: None)
  Receive Date: 20220722
  Receipt Date: 20220920
  Transmission Date: 20221026
  Serious: Yes (Death)
  Sender: FDA-Public Use
  Company Number: TR-ROCHE-3143141

PATIENT
  Age: 62 Year
  Sex: Female
  Weight: 75 kg

DRUGS (13)
  1. BEVACIZUMAB [Suspect]
     Active Substance: BEVACIZUMAB
     Indication: Bile duct cancer
     Dosage: START DATE OF MOST RECENT DOSE OF STUDY DRUG PRIOR TO AE AND SAE: 17/DEC/2021
     Route: 042
     Dates: start: 20210805
  2. ATEZOLIZUMAB [Suspect]
     Active Substance: ATEZOLIZUMAB
     Indication: Bile duct cancer
     Dosage: START DATE OF MOST RECENT DOSE OF STUDY DRUG PRIOR TO AE AND SAE ON 30/JUN/2022 AT 1200 MG
     Route: 042
     Dates: start: 20210805
  3. CISPLATIN [Suspect]
     Active Substance: CISPLATIN
     Indication: Bile duct cancer
     Dosage: START DATE OF MOST RECENT DOSE ( 26.1 MG)  OF STUDY DRUG PRIOR TO AE AND SAE: 17/DEC/2021,
     Route: 042
     Dates: start: 20210805
  4. GEMCITABINE [Suspect]
     Active Substance: GEMCITABINE
     Indication: Bile duct cancer
     Dosage: START DATE OF MOST RECENT DOSE (1740 MG)  OF STUDY DRUG PRIOR TO AE AND SAE: 17/DEC/2021
     Route: 042
     Dates: start: 20210805
  5. PANTO (TURKEY) [Concomitant]
     Indication: Prophylaxis
     Dates: start: 20210805
  6. BETAHISTINE [Concomitant]
     Active Substance: BETAHISTINE
     Dates: start: 20210826
  7. PIRACETAM [Concomitant]
     Active Substance: PIRACETAM
     Dates: start: 20211025
  8. HYDROCHLOROTHIAZIDE\VALSARTAN [Concomitant]
     Active Substance: HYDROCHLOROTHIAZIDE\VALSARTAN
     Indication: Hypertension
     Dosage: 160 MG/12.5 MG
     Dates: start: 2015
  9. CIPRALEX [Concomitant]
     Active Substance: ESCITALOPRAM OXALATE
     Dates: start: 20211229
  10. ASPIRIN [Concomitant]
     Active Substance: ASPIRIN
     Indication: Prophylaxis
     Dates: start: 20211230
  11. AUGMENTIN [Concomitant]
     Active Substance: AMOXICILLIN\CLAVULANATE POTASSIUM
     Dates: start: 20220224
  12. INFLASED [Concomitant]
     Indication: Lacrimation increased
     Dates: start: 20220518
  13. LOCOID [Concomitant]
     Active Substance: HYDROCORTISONE BUTYRATE
     Indication: Lacrimation increased
     Dates: start: 20220518

REACTIONS (1)
  - Sudden death [Fatal]

NARRATIVE: CASE EVENT DATE: 20220716
